FAERS Safety Report 18011260 (Version 1)
Quarter: 2020Q3

REPORT INFORMATION
  Report Type: Spontaneous
  Country: US (occurrence: US)
  Receive Date: 20200712
  Receipt Date: 20200712
  Transmission Date: 20201103
  Serious: No
  Sender: FDA-Public Use
  Company Number: US-ASTRAZENECA-2020SE83602

PATIENT
  Sex: Male
  Weight: 67.1 kg

DRUGS (1)
  1. LOKELMA [Suspect]
     Active Substance: SODIUM ZIRCONIUM CYCLOSILICATE
     Indication: RENAL INJURY
     Route: 048
     Dates: start: 201908

REACTIONS (3)
  - Weight fluctuation [Unknown]
  - Joint swelling [Unknown]
  - Product use issue [Unknown]
